FAERS Safety Report 20437022 (Version 3)
Quarter: 2023Q2

REPORT INFORMATION
  Report Type: Spontaneous
  Country: US (occurrence: US)
  Receive Date: 20220207
  Receipt Date: 20230522
  Transmission Date: 20230721
  Serious: No
  Sender: FDA-Public Use
  Company Number: US-SA-SAC20220204000207

PATIENT
  Age: 78 Year
  Sex: Female

DRUGS (2)
  1. AUBAGIO [Suspect]
     Active Substance: TERIFLUNOMIDE
     Indication: Bone disorder
     Dosage: 14 MG, QD
     Route: 048
     Dates: start: 20210625
  2. AUBAGIO [Suspect]
     Active Substance: TERIFLUNOMIDE
     Indication: Multiple sclerosis

REACTIONS (11)
  - Pruritus [Unknown]
  - Dehydration [Unknown]
  - Pigmentation disorder [Unknown]
  - Asthenia [Unknown]
  - Vascular pain [Unknown]
  - Pain [Unknown]
  - Urticaria [Unknown]
  - Pain in extremity [Unknown]
  - Rash [Unknown]
  - Alopecia [Unknown]
  - Product use in unapproved indication [Unknown]

NARRATIVE: CASE EVENT DATE: 20210625
